FAERS Safety Report 15404356 (Version 1)
Quarter: 2018Q3

REPORT INFORMATION
  Report Type: Report from Study
  Country: None (occurrence: US)
  Receive Date: 20180919
  Receipt Date: 20180919
  Transmission Date: 20181010
  Serious: Yes (Hospitalization)
  Sender: FDA-Public Use
  Company Number: US-ABBVIE-18K-163-2486584-00

PATIENT
  Sex: Female

DRUGS (1)
  1. HUMIRA [Suspect]
     Active Substance: ADALIMUMAB
     Indication: CROHN^S DISEASE
     Route: 058

REACTIONS (10)
  - Neuralgia [Unknown]
  - Dizziness [Unknown]
  - Paraesthesia [Unknown]
  - Red blood cell count decreased [Unknown]
  - Pain in extremity [Unknown]
  - Malabsorption [Unknown]
  - Fall [Unknown]
  - Abdominal pain [Unknown]
  - Head injury [Unknown]
  - Chest pain [Unknown]

NARRATIVE: CASE EVENT DATE: 2015
